FAERS Safety Report 10953407 (Version 1)
Quarter: 2015Q1

REPORT INFORMATION
  Report Type: Spontaneous
  Country: US (occurrence: US)
  Receive Date: 20150325
  Receipt Date: 20150325
  Transmission Date: 20150721
  Serious: Yes (Other)
  Sender: FDA-Public Use
  Company Number: US-GE HEALTHCARE MEDICAL DIAGNOSTICS-OSCN-PR-1503L-0043

PATIENT
  Age: 58 Year
  Sex: Female

DRUGS (3)
  1. OMNISCAN [Suspect]
     Active Substance: GADODIAMIDE
     Indication: DIAGNOSTIC PROCEDURE
     Route: 065
     Dates: start: 20060105, end: 20060105
  2. OMNISCAN [Suspect]
     Active Substance: GADODIAMIDE
     Indication: RENAL TRANSPLANT
     Route: 065
     Dates: start: 20051223, end: 20051223
  3. OMNISCAN [Suspect]
     Active Substance: GADODIAMIDE
     Route: 065
     Dates: start: 20060116, end: 20060116

REACTIONS (1)
  - Nephrogenic systemic fibrosis [Unknown]

NARRATIVE: CASE EVENT DATE: 20060310
